FAERS Safety Report 7833283-6 (Version None)
Quarter: 2011Q4

REPORT INFORMATION
  Report Type: 
  Country: None (occurrence: None)
  Receive Date: 20111024
  Receipt Date: 20111013
  Transmission Date: 20120403
  Serious: Yes (Other)
  Sender: FDA-Public Use
  Company Number: US-BAYER-2011-076324

PATIENT
  Age: 54 Year
  Sex: Male

DRUGS (3)
  1. NEXAVAR [Suspect]
     Dosage: 800 MG, QOD
     Dates: start: 20110801, end: 20110801
  2. NEXAVAR [Suspect]
     Dosage: 200 MG, BID
     Dates: start: 20110907
  3. NEXAVAR [Suspect]
     Indication: HEPATIC NEOPLASM MALIGNANT
     Dosage: 400 MG, BID
     Dates: start: 20110813

REACTIONS (6)
  - HEADACHE [None]
  - FATIGUE [None]
  - BLOOD PRESSURE INCREASED [None]
  - DRY SKIN [None]
  - PLATELET COUNT DECREASED [None]
  - ANAL ABSCESS [None]
